FAERS Safety Report 5946375-3 (Version None)
Quarter: 2008Q4

REPORT INFORMATION
  Report Type: 
  Country: None (occurrence: None)
  Receive Date: 20081106
  Receipt Date: 20081021
  Transmission Date: 20090506
  Serious: Yes (Hospitalization)
  Sender: FDA-Public Use
  Company Number: 2008BI028116

PATIENT
  Age: 33 Year
  Sex: Female

DRUGS (6)
  1. TYSABRI [Suspect]
     Indication: MULTIPLE SCLEROSIS
     Dates: start: 20061201, end: 20061201
  2. . [Concomitant]
  3. METHYLPREDNISOLONE 16MG TAB [Concomitant]
  4. INTERFERON BETA-1A [Concomitant]
  5. MITOXANTRONE [Concomitant]
  6. IMMUNE GLOBULIN NOS [Concomitant]

REACTIONS (2)
  - PARTIAL SEIZURES [None]
  - STATUS EPILEPTICUS [None]
